FAERS Safety Report 21546229 (Version 1)
Quarter: 2022Q4

REPORT INFORMATION
  Report Type: Spontaneous
  Country: US (occurrence: US)
  Receive Date: 20221103
  Receipt Date: 20221103
  Transmission Date: 20230112
  Serious: No
  Sender: FDA-Public Use
  Company Number: US-GSKCCFUS-Case-01539448_AE-87197

PATIENT
  Age: 62 Year
  Sex: Female

DRUGS (3)
  1. IMITREX [Suspect]
     Active Substance: SUMATRIPTAN SUCCINATE
     Indication: Product used for unknown indication
     Dosage: 6 MG
  2. IMITREX [Suspect]
     Active Substance: SUMATRIPTAN SUCCINATE
  3. IMITREX [Suspect]
     Active Substance: SUMATRIPTAN SUCCINATE
     Indication: Product used for unknown indication
     Dosage: 100 MG

REACTIONS (1)
  - Taste disorder [Unknown]
